FAERS Safety Report 6597713-2 (Version None)
Quarter: 2010Q1

REPORT INFORMATION
  Report Type: 
  Country: None (occurrence: None)
  Receive Date: 20100216
  Receipt Date: 20100208
  Transmission Date: 20100710
  Serious: Yes (Hospitalization)
  Sender: FDA-Public Use
  Company Number: 2010SP007486

PATIENT
  Age: 70 Year
  Sex: Female

DRUGS (10)
  1. BETAMETHASONE SODIUM PHOSPHATE [Suspect]
     Indication: BACK PAIN
     Dosage: 1 DF;ONCE;, 1 DF;ONCE;
     Dates: start: 20091201, end: 20091201
  2. BETAMETHASONE SODIUM PHOSPHATE [Suspect]
     Indication: BACK PAIN
     Dosage: 1 DF;ONCE;, 1 DF;ONCE;
     Dates: start: 20091201, end: 20091201
  3. SURGAM (TIAPROFENIC ACID) [Suspect]
     Indication: BACK PAIN
     Dates: start: 20091201, end: 20091201
  4. IBUPROFEN [Suspect]
     Indication: BACK PAIN
     Dates: start: 20091201, end: 20091201
  5. COLCHICIN [Concomitant]
  6. ALLOPURINOL [Concomitant]
  7. ZANIDIP [Concomitant]
  8. TAREG [Concomitant]
  9. VASTEN [Concomitant]
  10. TEMERIT [Concomitant]

REACTIONS (4)
  - BLISTER [None]
  - DIARRHOEA [None]
  - FIXED ERUPTION [None]
  - SKIN LESION [None]
